FAERS Safety Report 9604607 (Version 3)
Quarter: 2013Q4

REPORT INFORMATION
  Report Type: Spontaneous
  Country: DE (occurrence: DE)
  Receive Date: 20131008
  Receipt Date: 20131203
  Transmission Date: 20140711
  Serious: Yes (Other)
  Sender: FDA-Public Use
  Company Number: DE-PFIZER INC-2013281900

PATIENT
  Age: 78 Year
  Sex: Female

DRUGS (2)
  1. LYRICA [Suspect]
     Indication: HERPES ZOSTER
     Dosage: 25MG, 50 MG, 75 MG, 100 MG AS NEEDED
     Dates: start: 201105
  2. LYRICA [Suspect]
     Dosage: 25 MG, 1X/DAY

REACTIONS (17)
  - Cataract [Unknown]
  - Intervertebral disc protrusion [Unknown]
  - Spinal column stenosis [Unknown]
  - Bronchitis [Unknown]
  - Speech disorder [Unknown]
  - Balance disorder [Unknown]
  - Flatulence [Unknown]
  - Aphasia [Unknown]
  - Hypoaesthesia [Unknown]
  - Muscle spasms [Unknown]
  - Arthralgia [Unknown]
  - Asthenia [Not Recovered/Not Resolved]
  - Nausea [Unknown]
  - Paraesthesia [Unknown]
  - Vomiting [Not Recovered/Not Resolved]
  - Abdominal pain upper [Recovering/Resolving]
  - Therapeutic response unexpected [Unknown]
